FAERS Safety Report 23730123 (Version 1)
Quarter: 2024Q2

REPORT INFORMATION
  Report Type: Spontaneous
  Country: US (occurrence: US)
  Receive Date: 20240411
  Receipt Date: 20240411
  Transmission Date: 20240716
  Serious: Yes (Hospitalization, Other)
  Sender: FDA-Public Use
  Company Number: US-AMNEAL PHARMACEUTICALS-2024-AMRX-01163

PATIENT
  Age: 63 Year
  Sex: Female

DRUGS (1)
  1. VERAPAMIL HYDROCHLORIDE [Suspect]
     Active Substance: VERAPAMIL HYDROCHLORIDE
     Indication: Product used for unknown indication
     Dosage: 240 MILLIGRAM, DAILY
     Route: 065

REACTIONS (10)
  - Acute respiratory distress syndrome [Unknown]
  - Hypervolaemia [Unknown]
  - Lethargy [Unknown]
  - Toxicity to various agents [Unknown]
  - Vasoplegia syndrome [Unknown]
  - Hypoglycaemia [Unknown]
  - Polyuria [Recovered/Resolved]
  - Bifascicular block [Unknown]
  - Bradycardia [Unknown]
  - Hypotension [Unknown]
